FAERS Safety Report 4424277-1 (Version None)
Quarter: 2004Q3

REPORT INFORMATION
  Report Type: 
  Country: None (occurrence: None)
  Receive Date: 20040809
  Receipt Date: 20040727
  Transmission Date: 20050211
  Serious: Yes (Death, Life-Threatening)
  Sender: FDA-Public Use
  Company Number: 2004225506FR

PATIENT
  Age: 22 Year
  Sex: Female

DRUGS (4)
  1. DOXORUBICIN HCL [Suspect]
     Dosage: 80 MG, EVERY DAY; IV
     Route: 042
     Dates: end: 20040427
  2. IFOSFAMIDE [Concomitant]
     Dosage: 4 G, EVERY DAY, IV
     Route: 042
     Dates: end: 20040428
  3. MESNA [Suspect]
     Dosage: 3.3 G, EVERY DAY; IV
     Route: 042
     Dates: start: 20040428, end: 20040429
  4. CISPLATIN [Suspect]
     Dosage: 130 MG, EVERY DAY; IV
     Route: 042
     Dates: end: 20040427

REACTIONS (7)
  - ARRHYTHMIA [None]
  - CARDIO-RESPIRATORY ARREST [None]
  - COMA [None]
  - HAEMODIALYSIS [None]
  - RENAL FAILURE ACUTE [None]
  - RENAL TUBULAR NECROSIS [None]
  - RESPIRATORY ARREST [None]
